FAERS Safety Report 11051355 (Version 1)
Quarter: 2015Q2

REPORT INFORMATION
  Report Type: Spontaneous
  Country: US (occurrence: US)
  Receive Date: 20150421
  Receipt Date: 20150421
  Transmission Date: 20150821
  Serious: No
  Sender: FDA-Public Use
  Company Number: US-ASTRAZENECA-2015SE36595

PATIENT
  Sex: Female

DRUGS (1)
  1. CANDESARTAN CILEXETIL. [Suspect]
     Active Substance: CANDESARTAN CILEXETIL
     Dosage: 16, TWO TIMES A DAY
     Route: 048

REACTIONS (5)
  - Adverse event [Unknown]
  - Mental disorder [Unknown]
  - Abdominal discomfort [Unknown]
  - Headache [Unknown]
  - Malaise [Unknown]
